FAERS Safety Report 8887527 (Version 1)
Quarter: 2012Q4

REPORT INFORMATION
  Report Type: Spontaneous
  Country: FR (occurrence: None)
  Receive Date: 20121031
  Receipt Date: 20121031
  Transmission Date: 20130627
  Serious: Yes (Hospitalization)
  Sender: FDA-Public Use
  Company Number: IMP_06044_2012

PATIENT
  Age: 69 Year
  Sex: Male

DRUGS (9)
  1. OMEPRAZOLE [Suspect]
     Indication: PRODUCT USED FOR UNKNOWN INDICATION
  2. LERCANIDIPINE [Concomitant]
  3. ATORVASTATINE PFIZER [Concomitant]
  4. OXAZEPAM [Concomitant]
  5. RISPERIDONE [Concomitant]
  6. GALANTAMINE [Concomitant]
  7. ZOPICLONE [Concomitant]
  8. MIRTAZAPINE [Concomitant]
  9. ASPIRIN [Concomitant]

REACTIONS (6)
  - Abdominal pain [None]
  - Hyperthermia [None]
  - Hypocalcaemia [None]
  - Hypokalaemia [None]
  - Hypomagnesaemia [None]
  - Cognitive disorder [None]
